FAERS Safety Report 16424595 (Version 2)
Quarter: 2024Q4

REPORT INFORMATION
  Report Type: Report from Study
  Country: IT (occurrence: IT)
  Receive Date: 20190613
  Receipt Date: 20241125
  Transmission Date: 20250115
  Serious: Yes (Hospitalization)
  Sender: ACCORD
  Company Number: None

PATIENT
  Age: 22 Year
  Sex: Female

DRUGS (4)
  1. CLOZAPINE [Suspect]
     Active Substance: CLOZAPINE
     Indication: Drug abuse
     Dates: start: 20190128, end: 20190128
  2. LORAZEPAM [Suspect]
     Active Substance: LORAZEPAM
     Indication: Drug abuse
     Dates: start: 20190128, end: 20190128
  3. BISOPROLOL FUMARATE [Suspect]
     Active Substance: BISOPROLOL FUMARATE
     Indication: Drug abuse
     Route: 048
     Dates: start: 20190128, end: 20190128
  4. FLURAZEPAM HYDROCHLORIDE [Suspect]
     Active Substance: FLURAZEPAM HYDROCHLORIDE
     Indication: Drug abuse
     Dosage: STRENGTH 30 MG? 30 MG CAPSULE
     Dates: start: 20190128, end: 20190128

REACTIONS (4)
  - Sopor [Recovered/Resolved]
  - Bradyphrenia [Recovered/Resolved]
  - Hypokinesia [Recovered/Resolved]
  - Drug abuse [Recovered/Resolved]

NARRATIVE: CASE EVENT DATE: 20190129
